FAERS Safety Report 14472379 (Version 2)
Quarter: 2018Q1

REPORT INFORMATION
  Report Type: Report from Study
  Country: JP (occurrence: JP)
  Receive Date: 20180131
  Receipt Date: 20180330
  Transmission Date: 20180509
  Serious: Yes (Hospitalization, Other)
  Sender: FDA-Public Use
  Company Number: JP-AMGEN-JPNCT2018013371

PATIENT
  Age: 78 Year
  Sex: Male
  Weight: 57 kg

DRUGS (22)
  1. DARBEPOETIN ALFA [Suspect]
     Active Substance: DARBEPOETIN ALFA
     Dosage: 120 MUG, Q2WK
     Route: 058
     Dates: start: 20171129
  2. PREDNISOLONE. [Suspect]
     Active Substance: PREDNISOLONE
     Indication: POLYCHONDRITIS
     Dosage: UNK
     Route: 048
  3. FLOMOX [Concomitant]
     Active Substance: CEFCAPENE PIVOXIL HYDROCHLORIDE HYDRATE
     Dosage: 300 MG, UNK
     Route: 048
     Dates: start: 20170118, end: 20170121
  4. DARBEPOETIN ALFA [Suspect]
     Active Substance: DARBEPOETIN ALFA
     Dosage: 120 MUG, Q2WK
     Route: 058
     Dates: start: 20170207
  5. CLARITH [Concomitant]
     Active Substance: CLARITHROMYCIN
     Indication: BLEPHARITIS
     Dosage: 400 MG, UNK
     Route: 048
     Dates: start: 20170306, end: 20170310
  6. LIXIANA [Concomitant]
     Active Substance: EDOXABAN TOSYLATE
     Indication: TRANSIENT ISCHAEMIC ATTACK
     Dosage: 30 MG, UNK
     Route: 048
     Dates: start: 20180116
  7. DARBEPOETIN ALFA [Suspect]
     Active Substance: DARBEPOETIN ALFA
     Dosage: 180 MUG, Q2WK
     Route: 058
     Dates: start: 20171004
  8. NEORAL [Concomitant]
     Active Substance: CYCLOSPORINE
     Indication: POLYCHONDRITIS
     Dosage: 50 MG, UNK
     Route: 048
     Dates: start: 20171004
  9. DARBEPOETIN ALFA [Suspect]
     Active Substance: DARBEPOETIN ALFA
     Indication: MYELODYSPLASTIC SYNDROME
     Dosage: 120 MUG, QWK
     Route: 058
     Dates: start: 20161220
  10. DARBEPOETIN ALFA [Suspect]
     Active Substance: DARBEPOETIN ALFA
     Dosage: 120 MUG, UNK
     Route: 058
     Dates: start: 20171101
  11. HARNAL [Concomitant]
     Active Substance: TAMSULOSIN HYDROCHLORIDE
     Indication: BENIGN PROSTATIC HYPERPLASIA
     Dosage: 0.2 MG, UNK
     Route: 048
  12. AVOLVE [Concomitant]
     Active Substance: DUTASTERIDE
     Indication: BENIGN PROSTATIC HYPERPLASIA
     Dosage: 0.5 MG, UNK
     Route: 048
  13. COLCHICINE. [Concomitant]
     Active Substance: COLCHICINE
     Indication: POLYCHONDRITIS
     Dosage: 0.5 MG, UNK
     Route: 048
     Dates: start: 20170511, end: 20170823
  14. DARBEPOETIN ALFA [Suspect]
     Active Substance: DARBEPOETIN ALFA
     Dosage: 120 MUG, QWK
     Route: 058
     Dates: start: 20170110
  15. ALFACALCIDOL [Concomitant]
     Active Substance: ALFACALCIDOL
     Dosage: 0.5 MUG, UNK
     Route: 048
  16. FEBURIC [Concomitant]
     Active Substance: FEBUXOSTAT
     Indication: HYPERURICAEMIA
     Dosage: 10 MG, UNK
     Route: 048
  17. RECALBON [Concomitant]
     Active Substance: MINODRONIC ACID
     Dosage: 50 MG, UNK
     Route: 048
     Dates: end: 20170221
  18. SAMTIREL [Concomitant]
     Active Substance: ATOVAQUONE
     Dosage: UNK
     Route: 048
     Dates: start: 20170615, end: 20170829
  19. DAIPHEN [Concomitant]
     Active Substance: SULFAMETHOXAZOLE\TRIMETHOPRIM
     Dosage: UNK
     Route: 048
     Dates: start: 20171018
  20. DARBEPOETIN ALFA [Suspect]
     Active Substance: DARBEPOETIN ALFA
     Dosage: 180 MUG, UNK
     Route: 058
     Dates: start: 20171115
  21. GLAKAY [Concomitant]
     Active Substance: MENATETRENONE
     Indication: MYELODYSPLASTIC SYNDROME
     Dosage: 45 MG, UNK
     Route: 048
     Dates: start: 20161220
  22. GENINAX [Concomitant]
     Active Substance: GARENOXACIN MESYLATE
     Indication: PNEUMONIA
     Dosage: 400 MG, UNK
     Route: 048
     Dates: start: 20170823, end: 20170829

REACTIONS (3)
  - Pneumonia [Recovered/Resolved]
  - Blepharitis [Recovered/Resolved]
  - Transient ischaemic attack [Recovered/Resolved]

NARRATIVE: CASE EVENT DATE: 20170306
